FAERS Safety Report 19279662 (Version 1)
Quarter: 2021Q2

REPORT INFORMATION
  Report Type: Spontaneous
  Country: CH (occurrence: CH)
  Receive Date: 20210520
  Receipt Date: 20210520
  Transmission Date: 20210717
  Serious: Yes (Other)
  Sender: FDA-Public Use
  Company Number: CH-ELI_LILLY_AND_COMPANY-CH202105003303

PATIENT
  Age: 71 Year
  Sex: Male

DRUGS (3)
  1. PEMBROLIZUMAB. [Suspect]
     Active Substance: PEMBROLIZUMAB
     Indication: LUNG ADENOCARCINOMA
     Dosage: UNK UNK, CYCLICAL
     Route: 065
  2. PLATINUM [Suspect]
     Active Substance: PLATINUM
     Indication: LUNG ADENOCARCINOMA
     Dosage: UNK UNK, CYCLICAL
     Route: 065
  3. PEMETREXED. [Suspect]
     Active Substance: PEMETREXED
     Indication: LUNG ADENOCARCINOMA
     Dosage: UNK UNK, CYCLICAL
     Route: 065

REACTIONS (2)
  - Acute kidney injury [Unknown]
  - Renal tubular necrosis [Unknown]
